FAERS Safety Report 19307803 (Version 2)
Quarter: 2021Q3

REPORT INFORMATION
  Report Type: Spontaneous
  Country: US (occurrence: US)
  Receive Date: 20210526
  Receipt Date: 20210702
  Transmission Date: 20211014
  Serious: No
  Sender: FDA-Public Use
  Company Number: US-009507513-2105USA005110

PATIENT

DRUGS (1)
  1. KEYTRUDA [Suspect]
     Active Substance: PEMBROLIZUMAB
     Indication: NON-SMALL CELL LUNG CANCER METASTATIC
     Dosage: UNK, AT 3?WEEK INTERVAL
     Dates: start: 20180619, end: 20181023

REACTIONS (1)
  - Immune-mediated dermatitis [Recovered/Resolved]

NARRATIVE: CASE EVENT DATE: 201807
